FAERS Safety Report 4919677-7 (Version None)
Quarter: 2006Q1

REPORT INFORMATION
  Report Type: 
  Country: None (occurrence: None)
  Receive Date: 20060113
  Receipt Date: 20051118
  Transmission Date: 20060701
  Serious: No
  Sender: FDA-Public Use
  Company Number: 2005SP004064

PATIENT
  Age: 84 Year
  Sex: Male
  Weight: 64.8644 kg

DRUGS (1)
  1. LUNESTA [Suspect]
     Indication: SLEEP DISORDER
     Dosage: 2 MG;ORAL
     Route: 048
     Dates: start: 20051101

REACTIONS (4)
  - DRUG INEFFECTIVE [None]
  - DYSCHEZIA [None]
  - INSOMNIA [None]
  - MYASTHENIC SYNDROME [None]
